FAERS Safety Report 21474767 (Version 4)
Quarter: 2022Q4

REPORT INFORMATION
  Report Type: Report from Study
  Country: US (occurrence: US)
  Receive Date: 20221018
  Receipt Date: 20221229
  Transmission Date: 20230112
  Serious: Yes (Hospitalization)
  Sender: FDA-Public Use
  Company Number: US-ABBVIE-22K-163-4442019-00

PATIENT
  Sex: Female
  Weight: 81 kg

DRUGS (5)
  1. RINVOQ [Suspect]
     Active Substance: UPADACITINIB
     Indication: Rheumatoid arthritis
     Dosage: 15 MG?DRUG START DATE: 03 MAR 2022
     Route: 048
     Dates: start: 20220303
  2. FOLIC ACID [Concomitant]
     Active Substance: FOLIC ACID
     Indication: Product used for unknown indication
  3. LISINOPRIL AND HYDROCHLOROTHIAZIDE [Concomitant]
     Active Substance: HYDROCHLOROTHIAZIDE\LISINOPRIL
     Indication: Product used for unknown indication
     Dosage: 20-25 MG
  4. LISINOPRIL [Concomitant]
     Active Substance: LISINOPRIL
     Indication: Product used for unknown indication
  5. VITAMIN D [Concomitant]
     Active Substance: VITAMIN D NOS
     Indication: Product used for unknown indication

REACTIONS (10)
  - Peripheral swelling [Recovering/Resolving]
  - Weight decreased [Unknown]
  - Rheumatoid arthritis [Recovering/Resolving]
  - Loss of personal independence in daily activities [Unknown]
  - Diarrhoea [Recovering/Resolving]
  - Mobility decreased [Unknown]
  - Cartilage atrophy [Unknown]
  - Inflammation [Recovering/Resolving]
  - Pain [Unknown]
  - Food intolerance [Unknown]

NARRATIVE: CASE EVENT DATE: 20220101
